FAERS Safety Report 7866165-4 (Version None)
Quarter: 2011Q4

REPORT INFORMATION
  Report Type: 
  Country: None (occurrence: None)
  Receive Date: 20111028
  Receipt Date: 20110504
  Transmission Date: 20120403
  Serious: No
  Sender: FDA-Public Use
  Company Number: US-GLAXOSMITHKLINE-A0925776A

PATIENT
  Age: 74 Year
  Sex: Female

DRUGS (19)
  1. SPIRIVA [Concomitant]
  2. PREMARIN [Concomitant]
  3. VITAMIN D [Concomitant]
  4. SCOPE [Concomitant]
  5. NEXIUM [Concomitant]
  6. DILTIAZEM HCL [Concomitant]
  7. DOXYCLINE [Concomitant]
  8. FUROSEMIDE [Concomitant]
  9. ADVAIR DISKUS 100/50 [Suspect]
     Indication: BRONCHITIS
     Dosage: 1PUFF TWICE PER DAY
     Route: 055
     Dates: start: 20100501
  10. SYNTHROID [Concomitant]
  11. CRESTOR [Concomitant]
  12. VITAMIN E [Concomitant]
  13. HYDROCODONE BITARTRATE [Concomitant]
  14. METHOCARBAMOL [Concomitant]
  15. XOPENEX [Concomitant]
  16. ASCORBIC ACID [Concomitant]
  17. ZOLOFT [Concomitant]
  18. SINGULAIR [Concomitant]
  19. PREDNISONE [Concomitant]

REACTIONS (3)
  - GLOSSODYNIA [None]
  - GINGIVAL PAIN [None]
  - DYSPHONIA [None]
